FAERS Safety Report 6652864-9 (Version None)
Quarter: 2010Q1

REPORT INFORMATION
  Report Type: 
  Country: None (occurrence: None)
  Receive Date: 20100326
  Receipt Date: 20100317
  Transmission Date: 20100710
  Serious: Yes (Disabling, Other)
  Sender: FDA-Public Use
  Company Number: BR-ASTRAZENECA-2010SE12166

PATIENT
  Age: 78 Year
  Sex: Female
  Weight: 83 kg

DRUGS (7)
  1. NEXIUM [Suspect]
     Indication: GASTROOESOPHAGEAL REFLUX DISEASE
     Route: 048
     Dates: start: 20091201, end: 20100301
  2. NEXIUM [Suspect]
     Route: 048
  3. CRESTOR [Suspect]
     Indication: BLOOD CHOLESTEROL INCREASED
     Route: 048
     Dates: start: 20091201
  4. UNKNOWN [Concomitant]
     Indication: GLAUCOMA
     Route: 047
     Dates: start: 20000101
  5. XALATAN [Concomitant]
     Indication: GLAUCOMA
     Route: 047
     Dates: start: 20000101
  6. VASOPRIL [Concomitant]
     Indication: HYPERTENSION
     Route: 048
     Dates: start: 20080101
  7. SOMALGIN [Concomitant]
     Indication: ANTIPLATELET THERAPY
     Route: 048
     Dates: start: 20100101

REACTIONS (2)
  - FALL [None]
  - UPPER LIMB FRACTURE [None]
